FAERS Safety Report 5213685-7 (Version None)
Quarter: 2007Q1

REPORT INFORMATION
  Report Type: 
  Country: None (occurrence: None)
  Receive Date: 20070119
  Receipt Date: 20070109
  Transmission Date: 20070707
  Serious: Yes (Other)
  Sender: FDA-Public Use
  Company Number: US-PFIZER INC-2007003488

PATIENT
  Sex: Male
  Weight: 97.5 kg

DRUGS (9)
  1. CHANTIX [Suspect]
     Indication: SMOKING CESSATION THERAPY
  2. TERAZOSIN HCL [Concomitant]
  3. MONOPRIL [Concomitant]
  4. METOPROLOL SUCCINATE [Concomitant]
  5. TIAZAC [Concomitant]
  6. TRENTAL ^AVENTIS PHARMA^ [Concomitant]
  7. ZOCOR [Concomitant]
  8. ASPIRIN [Concomitant]
  9. COUMADIN [Concomitant]

REACTIONS (3)
  - INSOMNIA [None]
  - MOUTH HAEMORRHAGE [None]
  - NIGHTMARE [None]
